FAERS Safety Report 10955705 (Version 1)
Quarter: 2015Q1

REPORT INFORMATION
  Report Type: Spontaneous
  Country: US (occurrence: None)
  Receive Date: 20150325
  Receipt Date: 20150325
  Transmission Date: 20150721
  Serious: No
  Sender: FDA-Public Use
  Company Number: None

PATIENT
  Age: 68 Year
  Sex: Male
  Weight: 100 kg

DRUGS (1)
  1. LIDOCAINE. [Suspect]
     Active Substance: LIDOCAINE
     Indication: PAIN
     Dosage: 1
     Dates: start: 20141112, end: 20141115

REACTIONS (16)
  - Thirst [None]
  - Dyspnoea [None]
  - Confusional state [None]
  - Asthenia [None]
  - Dizziness [None]
  - Respiratory depression [None]
  - Insomnia [None]
  - Tachycardia [None]
  - Infrequent bowel movements [None]
  - Headache [None]
  - Nausea [None]
  - Tremor [None]
  - Nocturia [None]
  - Chromaturia [None]
  - Vomiting [None]
  - Pain [None]

NARRATIVE: CASE EVENT DATE: 20141120
